FAERS Safety Report 19089426 (Version 2)
Quarter: 2021Q2

REPORT INFORMATION
  Report Type: Report from Study
  Country: UG (occurrence: UG)
  Receive Date: 20210403
  Receipt Date: 20210514
  Transmission Date: 20210717
  Serious: Yes (Other)
  Sender: FDA-Public Use
  Company Number: UG-CIPLA LTD.-2021UG02444

PATIENT

DRUGS (5)
  1. BACTRIM [Concomitant]
     Active Substance: SULFAMETHOXAZOLE\TRIMETHOPRIM
     Indication: PROPHYLAXIS
     Dosage: UNK
     Route: 065
     Dates: start: 20150311
  2. LOPINAVIR/RITONAVIR [Suspect]
     Active Substance: LOPINAVIR\RITONAVIR
     Dosage: 200/50 MG, BID DAILY
     Route: 048
     Dates: start: 20180524, end: 20181101
  3. LAMIVUDINE/ZIDOVUDINE [Suspect]
     Active Substance: LAMIVUDINE\ZIDOVUDINE
     Dosage: 150/75 MG, BID DAILY
     Route: 048
     Dates: start: 20180524, end: 20181101
  4. LOPINAVIR/RITONAVIR [Suspect]
     Active Substance: LOPINAVIR\RITONAVIR
     Indication: HIV INFECTION
     Dosage: 160/40 MG BID DAILY
     Route: 048
     Dates: start: 20171207, end: 20180524
  5. LAMIVUDINE/ZIDOVUDINE [Suspect]
     Active Substance: LAMIVUDINE\ZIDOVUDINE
     Indication: HIV INFECTION
     Dosage: 120/60MG BID DAILY
     Route: 048
     Dates: start: 20171207, end: 20180524

REACTIONS (1)
  - Parasomnia [Recovered/Resolved]

NARRATIVE: CASE EVENT DATE: 20180521
